FAERS Safety Report 7050651-3 (Version None)
Quarter: 2010Q4

REPORT INFORMATION
  Report Type: 
  Country: None (occurrence: None)
  Receive Date: 20101018
  Receipt Date: 20101006
  Transmission Date: 20110411
  Serious: Yes (Other)
  Sender: FDA-Public Use
  Company Number: JP-GILEAD-E2B_00000884

PATIENT
  Age: 67 Year
  Sex: Female

DRUGS (11)
  1. HEPSERA [Suspect]
     Indication: HEPATITIS B
     Route: 048
  2. ZEFFIX [Concomitant]
     Indication: HEPATITIS B
     Route: 048
  3. GLYCYRON [Concomitant]
     Route: 065
  4. BEPOTASTINE [Concomitant]
     Route: 048
  5. AMLODIPINE BESYLATE [Concomitant]
  6. TAKEPRON [Concomitant]
  7. THYRADIN [Concomitant]
  8. GASMOTIN [Concomitant]
  9. AZULENE [Concomitant]
  10. HALCION [Concomitant]
     Route: 048
  11. NEUER [Concomitant]
     Route: 048

REACTIONS (4)
  - BLOOD CREATININE INCREASED [None]
  - INFLAMMATORY MARKER INCREASED [None]
  - RENAL TUBULAR DISORDER [None]
  - TUBULOINTERSTITIAL NEPHRITIS [None]
